FAERS Safety Report 24229925 (Version 1)
Quarter: 2024Q3

REPORT INFORMATION
  Report Type: Spontaneous
  Country: US (occurrence: None)
  Receive Date: 20240820
  Receipt Date: 20240820
  Transmission Date: 20241017
  Serious: Yes (Death)
  Sender: Public
  Company Number: None

PATIENT
  Age: 66 Year
  Sex: Male
  Weight: 59 kg

DRUGS (16)
  1. MAVYRET [Suspect]
     Active Substance: GLECAPREVIR\PIBRENTASVIR
     Indication: Chronic hepatitis C
     Dosage: FREQUENCY : 3 TIMES A DAY;?
     Route: 048
     Dates: start: 20240726, end: 20240816
  2. GABAPENTIN [Concomitant]
  3. MELATONIN [Concomitant]
  4. TRAZODONE [Concomitant]
  5. Aspirin [Concomitant]
  6. CARVEDILOL [Concomitant]
  7. HUMALOG [Concomitant]
  8. LEVOTHYROXINE [Concomitant]
  9. ATORVASTATIN [Concomitant]
  10. Metamucil powder [Concomitant]
  11. METFORMIN [Concomitant]
  12. OXYCODONE [Concomitant]
  13. PRAZOSIN [Concomitant]
  14. TYLENOL [Concomitant]
  15. VALPROATE [Concomitant]
     Active Substance: VALPROIC ACID
  16. Voltaren [Concomitant]

REACTIONS (1)
  - Death [None]

NARRATIVE: CASE EVENT DATE: 20240816
